FAERS Safety Report 4263789-0 (Version None)
Quarter: 2004Q1

REPORT INFORMATION
  Report Type: 
  Country: None (occurrence: None)
  Receive Date: 20040102
  Receipt Date: 20031223
  Transmission Date: 20041129
  Serious: Yes (Death)
  Sender: FDA-Public Use
  Company Number: US-JNJFOC-20031205205

PATIENT
  Age: 68 Year
  Sex: Male
  Weight: 75.3 kg

DRUGS (6)
  1. LEVAQUIN [Suspect]
     Indication: DRUG USE FOR UNKNOWN INDICATION
     Dosage: 500 MG, 1 IN 1 DAY, ORAL 3
     Route: 048
     Dates: start: 20031117, end: 20031123
  2. COMBIVENT [Concomitant]
  3. SULFRAN (SULFREDOX) [Concomitant]
  4. NIZORAL [Concomitant]
  5. CELEBREX [Concomitant]
  6. NEXIUM [Concomitant]

REACTIONS (1)
  - DEATH [None]
